FAERS Safety Report 21268672 (Version 5)
Quarter: 2022Q4

REPORT INFORMATION
  Report Type: Spontaneous
  Country: CA (occurrence: CA)
  Receive Date: 20220830
  Receipt Date: 20221021
  Transmission Date: 20230113
  Serious: Yes (Other)
  Sender: FDA-Public Use
  Company Number: CA-CELLTRION INC.-2021CA010472

PATIENT

DRUGS (18)
  1. INFLECTRA [Suspect]
     Active Substance: INFLIXIMAB-DYYB
     Indication: Colitis ulcerative
     Dosage: 10 MG/ KG 0,2,6 WEEKS AND THEN EVERY 8 WEEKS
     Route: 042
     Dates: start: 20210614, end: 20210614
  2. INFLECTRA [Suspect]
     Active Substance: INFLIXIMAB-DYYB
     Dosage: 10 MG/KG,Q 0,2,6 WEEKS, THEN Q 8 WEEKS.
     Route: 042
     Dates: start: 20210614, end: 20220425
  3. INFLECTRA [Suspect]
     Active Substance: INFLIXIMAB-DYYB
     Dosage: 10 MG/ KG 0,2,6 WEEKS AND THEN EVERY 8 WEEKS,
     Route: 042
     Dates: start: 20210626
  4. INFLECTRA [Suspect]
     Active Substance: INFLIXIMAB-DYYB
     Dosage: 10 MG/ KG 0,2,6 WEEKS AND THEN EVERY 8 WEEKS,
     Route: 042
     Dates: start: 20210724
  5. INFLECTRA [Suspect]
     Active Substance: INFLIXIMAB-DYYB
     Dosage: 10 MG/ KG 0,2,6 WEEKS AND THEN EVERY 8 WEEKS,
     Route: 042
     Dates: start: 20210927
  6. INFLECTRA [Suspect]
     Active Substance: INFLIXIMAB-DYYB
     Dosage: 10 MG/ KG 0,2,6 WEEKS AND THEN EVERY 8 WEEKS,
     Route: 042
     Dates: start: 20210927
  7. INFLECTRA [Suspect]
     Active Substance: INFLIXIMAB-DYYB
     Dosage: 10 MG/ KG 0,2,6 WEEKS AND THEN EVERY 8 WEEKS,
     Route: 042
     Dates: start: 20210927
  8. INFLECTRA [Suspect]
     Active Substance: INFLIXIMAB-DYYB
     Dosage: 10 MG/ KG 0,2,6 WEEKS AND THEN EVERY 8 WEEKS,
     Route: 042
     Dates: start: 20211206
  9. INFLECTRA [Suspect]
     Active Substance: INFLIXIMAB-DYYB
     Dosage: 1100 MG
     Route: 042
     Dates: start: 20220425
  10. INFLECTRA [Suspect]
     Active Substance: INFLIXIMAB-DYYB
     Dosage: 1100 MG
     Route: 042
     Dates: start: 20220425
  11. INFLECTRA [Suspect]
     Active Substance: INFLIXIMAB-DYYB
     Dosage: 1000 MG, Q 0,2,6 WEEKS, THEN Q 8 (W0) (RE-INDUCTION W0, W2, W6 AND Q 8 WEEKS)
     Route: 042
     Dates: start: 20220830
  12. INFLECTRA [Suspect]
     Active Substance: INFLIXIMAB-DYYB
     Dosage: 1000 MG, Q 0,2,6 WEEKS, THEN Q 8
     Route: 042
     Dates: start: 20220912
  13. INFLECTRA [Suspect]
     Active Substance: INFLIXIMAB-DYYB
     Dosage: 1000 MG, Q 0,2,6 WEEKS, THEN Q 8 (W6) (RE-INDUCTION W0, W2, W6 AND Q 8 WEEKS)
     Route: 042
     Dates: start: 20221011
  14. IMURAN [Concomitant]
     Active Substance: AZATHIOPRINE
     Dosage: 50 MG, 1X/DAY, OD FOR ONE WEEK AND THEN 100MG
     Route: 048
  15. IMURAN [Concomitant]
     Active Substance: AZATHIOPRINE
     Dosage: 200MG/DAY
  16. PENTASA [Concomitant]
     Active Substance: MESALAMINE
     Dosage: UNK
  17. PREDNISONE [Concomitant]
     Active Substance: PREDNISONE
     Dosage: 50 MG TAPERING DOSE
     Dates: start: 20210529
  18. PREDNISONE [Concomitant]
     Active Substance: PREDNISONE
     Dosage: 40MG/DAY

REACTIONS (18)
  - Rectal haemorrhage [Unknown]
  - Weight increased [Unknown]
  - Weight decreased [Unknown]
  - Condition aggravated [Recovered/Resolved]
  - Condition aggravated [Recovering/Resolving]
  - Nervousness [Unknown]
  - Heart rate irregular [Unknown]
  - Acne [Not Recovered/Not Resolved]
  - Illness [Not Recovered/Not Resolved]
  - Pyrexia [Not Recovered/Not Resolved]
  - Loss of personal independence in daily activities [Unknown]
  - Frequent bowel movements [Unknown]
  - Inflammation [Unknown]
  - Off label use [Unknown]
  - Off label use [Unknown]
  - Off label use [Unknown]
  - Intentional product use issue [Unknown]
  - Inappropriate schedule of product administration [Unknown]

NARRATIVE: CASE EVENT DATE: 20210101
